FAERS Safety Report 21881159 (Version 1)
Quarter: 2023Q1

REPORT INFORMATION
  Report Type: Spontaneous
  Country: FR (occurrence: FR)
  Receive Date: 20230118
  Receipt Date: 20230118
  Transmission Date: 20230418
  Serious: Yes (Other)
  Sender: FDA-Public Use
  Company Number: FR-BAXTER-2023BAX010086

PATIENT
  Age: 79 Year
  Sex: Female
  Weight: 86 kg

DRUGS (2)
  1. DOXORUBICIN HYDROCHLORIDE [Suspect]
     Active Substance: DOXORUBICIN HYDROCHLORIDE
     Indication: Ovarian cancer
     Dosage: 48 MG DILUTED WITH 250 ML OF 5% GLUCOSE, VIAL (CONCENTRATION: 20 MG/10 ML)
     Route: 042
     Dates: start: 20221212, end: 20221212
  2. DEXTROSE [Suspect]
     Active Substance: DEXTROSE
     Indication: Medication dilution
     Dosage: 250 ML, USED TO DILUTE 48 MG DOXORUBICIN HCL LIPOSOME INJECTION
     Route: 042
     Dates: start: 20221212, end: 20221212

REACTIONS (7)
  - Anaphylactic shock [Unknown]
  - Suffocation feeling [Unknown]
  - Hypersensitivity [Recovered/Resolved]
  - Back pain [Recovered/Resolved]
  - Feeling abnormal [Recovered/Resolved]
  - Erythema [Recovered/Resolved]
  - Pain [Recovered/Resolved]

NARRATIVE: CASE EVENT DATE: 20221212
